FAERS Safety Report 20315376 (Version 1)
Quarter: 2022Q1

REPORT INFORMATION
  Report Type: Spontaneous
  Country: US (occurrence: None)
  Receive Date: 20220110
  Receipt Date: 20220110
  Transmission Date: 20220424
  Serious: No
  Sender: FDA-Public Use
  Company Number: US-ROCHE-2817000

PATIENT
  Sex: Male
  Weight: 104.42 kg

DRUGS (1)
  1. RITUXAN [Suspect]
     Active Substance: RITUXIMAB
     Indication: Marginal zone lymphoma
     Route: 042
     Dates: start: 202101

REACTIONS (1)
  - Hepatomegaly [Unknown]

NARRATIVE: CASE EVENT DATE: 20210101
